FAERS Safety Report 6690337-8 (Version None)
Quarter: 2010Q2

REPORT INFORMATION
  Report Type: 
  Country: None (occurrence: None)
  Receive Date: 20100421
  Receipt Date: 20100421
  Transmission Date: 20101027
  Serious: Yes (Life-Threatening, Hospitalization, Other)
  Sender: FDA-Public Use
  Company Number: None

PATIENT
  Age: 31 Year
  Sex: Female
  Weight: 90.7194 kg

DRUGS (2)
  1. MIFEPREX [Suspect]
     Indication: ABORTION INDUCED
     Dosage: 200MG 1X ORAL
     Route: 048
     Dates: start: 20100303
  2. MISOPROSTOL [Suspect]
     Indication: ABORTION INDUCED
     Dosage: 800MCG 1X VAGINAL
     Route: 067

REACTIONS (3)
  - CLOSTRIDIAL INFECTION [None]
  - ENDOMETRITIS [None]
  - UTERINE INFECTION [None]
